FAERS Safety Report 5904329-7 (Version None)
Quarter: 2008Q4

REPORT INFORMATION
  Report Type: 
  Country: None (occurrence: None)
  Receive Date: 20081001
  Receipt Date: 20080922
  Transmission Date: 20090506
  Serious: Yes (Hospitalization, Other)
  Sender: FDA-Public Use
  Company Number: PHNU2008DE02032

PATIENT
  Sex: Female

DRUGS (2)
  1. ZOMETA [Suspect]
     Indication: METASTASES TO BONE
     Dosage: 4 MG, EVERY 4 WEEKS
     Route: 042
     Dates: start: 20051201, end: 20080501
  2. ZOLADEX [Concomitant]
     Dosage: 3.6 MG EVERY 4 WEEKS
     Route: 058
     Dates: start: 20051201

REACTIONS (4)
  - GASTROINTESTINAL TUBE INSERTION [None]
  - JAW OPERATION [None]
  - OSTEONECROSIS [None]
  - SURGERY [None]
